FAERS Safety Report 22136599 (Version 1)
Quarter: 2023Q1

REPORT INFORMATION
  Report Type: Spontaneous
  Country: US (occurrence: US)
  Receive Date: 20230324
  Receipt Date: 20230324
  Transmission Date: 20230418
  Serious: No
  Sender: FDA-Public Use
  Company Number: US-IGSA-BIG0022709

PATIENT
  Age: 56 Year
  Sex: Female
  Weight: 147.39 kg

DRUGS (2)
  1. GAMUNEX-C [Suspect]
     Active Substance: HUMAN IMMUNOGLOBULIN G
     Indication: Autonomic neuropathy
     Dosage: 150 GRAM, UNKNOWN
     Route: 042
     Dates: start: 20230307
  2. GAMUNEX-C [Suspect]
     Active Substance: HUMAN IMMUNOGLOBULIN G
     Indication: Off label use
     Dosage: 150 GRAM
     Route: 042
     Dates: start: 2014

REACTIONS (8)
  - Pruritus [Recovering/Resolving]
  - Insomnia [Unknown]
  - Blood pressure increased [Recovered/Resolved]
  - Chills [Unknown]
  - Malaise [Unknown]
  - Swelling face [Recovered/Resolved]
  - Eye swelling [Recovered/Resolved]
  - Condition aggravated [Recovering/Resolving]

NARRATIVE: CASE EVENT DATE: 20230307
